FAERS Safety Report 24964675 (Version 1)
Quarter: 2025Q1

REPORT INFORMATION
  Report Type: Spontaneous
  Country: US (occurrence: US)
  Receive Date: 20250213
  Receipt Date: 20250213
  Transmission Date: 20250409
  Serious: Yes (Other)
  Sender: UCB
  Company Number: US-UCBSA-2025007530

PATIENT
  Sex: Female

DRUGS (5)
  1. KEPPRA [Suspect]
     Active Substance: LEVETIRACETAM
     Indication: Product used for unknown indication
  2. KEPPRA [Suspect]
     Active Substance: LEVETIRACETAM
  3. KEPPRA [Suspect]
     Active Substance: LEVETIRACETAM
  4. KEPPRA [Suspect]
     Active Substance: LEVETIRACETAM
  5. KEPPRA [Suspect]
     Active Substance: LEVETIRACETAM

REACTIONS (13)
  - Seizure [Recovering/Resolving]
  - Meningioma [Unknown]
  - Meningioma surgery [Unknown]
  - Surgery [Unknown]
  - Breast cancer [Unknown]
  - Thyroid cancer [Unknown]
  - Weight decreased [Unknown]
  - COVID-19 [Unknown]
  - Blood pressure decreased [Unknown]
  - Amnesia [Unknown]
  - Nail infection [Recovering/Resolving]
  - Hypoaesthesia [Recovering/Resolving]
  - Peripheral swelling [Recovered/Resolved]
